FAERS Safety Report 25515357 (Version 3)
Quarter: 2025Q4

REPORT INFORMATION
  Report Type: Spontaneous
  Country: JP (occurrence: JP)
  Receive Date: 20250704
  Receipt Date: 20251007
  Transmission Date: 20260118
  Serious: Yes (Hospitalization, Other)
  Sender: AMGEN
  Company Number: JP-DSJP-DS-2025-150447-

PATIENT
  Age: 77 Year
  Sex: Female

DRUGS (14)
  1. DENOSUMAB [Suspect]
     Active Substance: DENOSUMAB
     Indication: Osteoporosis
     Dosage: 60 MG, ONCE EVERY 6 MO
     Route: 058
     Dates: start: 20220225, end: 20230308
  2. DENOSUMAB [Suspect]
     Active Substance: DENOSUMAB
     Indication: Rheumatoid arthritis
     Dosage: UNK
     Route: 065
  3. METHOTREXATE [Concomitant]
     Active Substance: METHOTREXATE
     Indication: Rheumatoid arthritis
     Dosage: 3 TABLETS TWICE DAILY, SATURDAY, AFTER BREAKFAST AND DINNER, ONCE EVERY 1 WK
     Route: 048
     Dates: start: 20210403, end: 20231209
  4. METHOTREXATE [Concomitant]
     Active Substance: METHOTREXATE
     Dosage: 2 MG, ONCE EVERY 1 WK, SUNDAY, AFTER BREAKFAST,
     Route: 048
     Dates: start: 20210404, end: 20231210
  5. FOLIC ACID [Concomitant]
     Active Substance: FOLIC ACID
     Indication: Folate deficiency
     Dosage: 5 MG, ONCE EVERY 1 WK, AFTER BREAKFAST, TUESDAY
     Route: 048
     Dates: start: 20210406, end: 20231212
  6. GASTER [Concomitant]
     Active Substance: FAMOTIDINE
     Indication: Chronic gastritis
     Dosage: 10 MG, BID, AFTER BREAKFAST AND DINNER
     Route: 048
     Dates: start: 20210730, end: 20240207
  7. PREDNISOLONE [Concomitant]
     Active Substance: PREDNISOLONE
     Indication: Rheumatoid arthritis
     Dosage: 5 MG, QD, AFTER BREAKFAST
     Route: 048
     Dates: start: 20210402, end: 20240207
  8. PREDNISOLONE [Concomitant]
     Active Substance: PREDNISOLONE
     Indication: Systemic lupus erythematosus
     Dosage: UNK
     Route: 065
  9. ONEALFA [Concomitant]
     Active Substance: ALFACALCIDOL
     Indication: Osteoporosis
     Dosage: 1 UG, QD, AFTER BREAKFAST
     Route: 048
     Dates: start: 20210402, end: 20240207
  10. ROSUVASTATIN CALCIUM [Concomitant]
     Active Substance: ROSUVASTATIN CALCIUM
     Indication: Hypercholesterolaemia
     Dosage: 5 MG, QD, AFTER DINNER
     Route: 048
     Dates: start: 20210402, end: 20240207
  11. CALONAL [Concomitant]
     Active Substance: ACETAMINOPHEN
     Indication: Osteoarthritis
     Dosage: 500 MG, TID, AFTER EVERY MEAL
     Route: 048
     Dates: start: 20220801, end: 20220805
  12. KETOPROFEN [Concomitant]
     Active Substance: KETOPROFEN
     Indication: Rheumatoid arthritis
     Dosage: 20 MG, 3 SHEETS/DAY
     Route: 065
     Dates: start: 20210618, end: 20231211
  13. KETOPROFEN [Concomitant]
     Active Substance: KETOPROFEN
     Indication: Osteoarthritis
     Dosage: 40 MG, 3 SHEETS/DAY
     Route: 065
     Dates: start: 20210402, end: 20231211
  14. ISODINE [Concomitant]
     Active Substance: POVIDONE-IODINE
     Indication: Pharyngitis
     Dosage: 4 ML, TID
     Route: 065
     Dates: start: 20220121, end: 20220401

REACTIONS (5)
  - Rib fracture [Unknown]
  - Osteonecrosis of jaw [Recovered/Resolved]
  - Rib fracture [Unknown]
  - Thoracic vertebral fracture [Unknown]
  - Fall [Unknown]

NARRATIVE: CASE EVENT DATE: 20230101
